APPROVED DRUG PRODUCT: TRIAMCINOLONE ACETONIDE
Active Ingredient: TRIAMCINOLONE ACETONIDE
Strength: 0.5%
Dosage Form/Route: OINTMENT;TOPICAL
Application: A209828 | Product #003 | TE Code: AT
Applicant: MACLEODS PHARMACEUTICALS LTD
Approved: Nov 23, 2018 | RLD: No | RS: No | Type: RX